FAERS Safety Report 6934575-5 (Version None)
Quarter: 2010Q3

REPORT INFORMATION
  Report Type: 
  Country: None (occurrence: None)
  Receive Date: 20100820
  Receipt Date: 20100809
  Transmission Date: 20110219
  Serious: Yes (Other)
  Sender: FDA-Public Use
  Company Number: US-PFIZER INC-2010100629

PATIENT
  Sex: Male
  Weight: 118 kg

DRUGS (13)
  1. CHANTIX [Suspect]
     Indication: SMOKING CESSATION THERAPY
     Dosage: .5 MG, 1X/DAY
     Route: 048
     Dates: start: 20100802
  2. ADVAIR DISKUS 100/50 [Concomitant]
     Indication: EMPHYSEMA
     Dosage: UNK
  3. DETROL LA [Concomitant]
     Dosage: UNK
  4. HYDROCHLOROTHIAZIDE [Concomitant]
     Dosage: UNK
  5. LISINOPRIL [Concomitant]
     Dosage: UNK
  6. LOVASTATIN [Concomitant]
     Dosage: UNK
  7. PLAVIX [Concomitant]
     Dosage: UNK
  8. PROAIR HFA [Concomitant]
     Dosage: UNK
  9. SIMVASTATIN [Concomitant]
     Dosage: UNK
  10. SINGULAIR ^DIECKMANN^ [Concomitant]
     Dosage: UNK
  11. SPIRIVA [Concomitant]
     Dosage: UNK
  12. ZOLPIDEM [Concomitant]
     Dosage: 10 MG, UNK
  13. OMEGA-3 TRIGLYCERIDES [Concomitant]

REACTIONS (3)
  - INSOMNIA [None]
  - NERVOUSNESS [None]
  - SLEEP APNOEA SYNDROME [None]
